FAERS Safety Report 7867774-9 (Version None)
Quarter: 2011Q4

REPORT INFORMATION
  Report Type: 
  Country: None (occurrence: None)
  Receive Date: 20111028
  Receipt Date: 20111019
  Transmission Date: 20120403
  Serious: Yes (Other)
  Sender: FDA-Public Use
  Company Number: US-ASTRAZENECA-2011SE17682

PATIENT
  Age: 66 Year
  Sex: Female

DRUGS (4)
  1. STEROIDS [Concomitant]
  2. RHINOCORT [Suspect]
     Route: 045
  3. WATER PILL [Concomitant]
  4. NEXIUM [Suspect]
     Route: 048

REACTIONS (7)
  - HYPERCHOLESTEROLAEMIA [None]
  - LIMB INJURY [None]
  - CONTUSION [None]
  - DRY EYE [None]
  - FALL [None]
  - OEDEMA PERIPHERAL [None]
  - FOOT FRACTURE [None]
